FAERS Safety Report 10285770 (Version 1)
Quarter: 2014Q3

REPORT INFORMATION
  Report Type: Report from Study
  Country: IT (occurrence: IT)
  Receive Date: 20140709
  Receipt Date: 20140709
  Transmission Date: 20150326
  Serious: Yes (Death)
  Sender: FDA-Public Use
  Company Number: IT-ROCHE-1429823

PATIENT
  Age: 52 Year
  Sex: Male

DRUGS (3)
  1. TELAPREVIR [Suspect]
     Active Substance: TELAPREVIR
     Indication: HEPATITIS C
     Route: 048
     Dates: start: 201107, end: 201109
  2. PEGINTERFERON ALFA-2A [Suspect]
     Active Substance: PEGINTERFERON ALFA-2A
     Indication: HEPATITIS C
     Route: 065
     Dates: start: 201107
  3. RIBAVIRIN. [Suspect]
     Active Substance: RIBAVIRIN
     Indication: HEPATITIS C
     Route: 065
     Dates: start: 201107

REACTIONS (7)
  - Anaemia [Fatal]
  - Dehydration [Fatal]
  - Hypercatabolism [Fatal]
  - Multi-organ failure [Fatal]
  - Hepatic failure [Fatal]
  - Ketoacidosis [Fatal]
  - Hepatorenal syndrome [Fatal]
